FAERS Safety Report 5996836-6 (Version None)
Quarter: 2008Q4

REPORT INFORMATION
  Report Type: 
  Country: None (occurrence: None)
  Receive Date: 20081212
  Receipt Date: 20081024
  Transmission Date: 20090506
  Serious: No
  Sender: FDA-Public Use
  Company Number: US-ABBOTT-08P-163-0484091-00

PATIENT
  Sex: Female
  Weight: 89.892 kg

DRUGS (7)
  1. HUMIRA [Suspect]
     Indication: RHEUMATOID ARTHRITIS
     Route: 058
     Dates: start: 20080801, end: 20081022
  2. HUMIRA [Suspect]
     Route: 058
     Dates: start: 20081022
  3. DIAZAPAM [Concomitant]
     Indication: ARTHRITIS
     Route: 048
  4. METAXALONE [Concomitant]
     Indication: ARTHRITIS
     Route: 048
  5. DIPROPHYLLINE [Concomitant]
     Indication: SINUS DISORDER
     Route: 048
  6. SERETIDE [Concomitant]
     Indication: COUGH
     Route: 055
  7. ATENOLOL [Concomitant]
     Indication: HYPERTENSION
     Route: 048

REACTIONS (3)
  - DRUG INEFFECTIVE [None]
  - INCORRECT DOSE ADMINISTERED [None]
  - PAIN [None]
